FAERS Safety Report 18500081 (Version 1)
Quarter: 2020Q4

REPORT INFORMATION
  Report Type: Spontaneous
  Country: US (occurrence: US)
  Receive Date: 20201113
  Receipt Date: 20201113
  Transmission Date: 20210114
  Serious: Yes (Other)
  Sender: FDA-Public Use
  Company Number: US-009507513-2011USA004970

PATIENT
  Age: 52 Year
  Sex: Male

DRUGS (3)
  1. INSULIN GLARGINE [Suspect]
     Active Substance: INSULIN GLARGINE
     Indication: DIABETES MELLITUS
     Dosage: 24 UNITS BEFORE BREAKFAST
     Route: 058
  2. JANUMET [Suspect]
     Active Substance: METFORMIN HYDROCHLORIDE\SITAGLIPTIN PHOSPHATE
     Indication: DIABETES MELLITUS
     Dosage: 1 TABLET BEFORE LUNCH AND BEFORE DINNER
     Route: 048
  3. METFORMIN HYDROCHLORIDE/GLICLAZIDE [Suspect]
     Active Substance: GLICLAZIDE\METFORMIN
     Indication: DIABETES MELLITUS
     Dosage: 1 TABLET 2 TIMES A DAY BEFORE BREAKFAST AND BEFORE DINNER
     Route: 048

REACTIONS (2)
  - Drug ineffective [Unknown]
  - Diabetes mellitus inadequate control [Recovered/Resolved]
